FAERS Safety Report 7016165-1 (Version None)
Quarter: 2010Q3

REPORT INFORMATION
  Report Type: 
  Country: None (occurrence: None)
  Receive Date: 20100927
  Receipt Date: 20100914
  Transmission Date: 20110219
  Serious: Yes (Death, Hospitalization, Other)
  Sender: FDA-Public Use
  Company Number: IN-WATSON-2010-12598

PATIENT
  Age: 24 Year
  Sex: Male

DRUGS (1)
  1. DEXAMETHASONE ACETATE [Suspect]
     Indication: DRUG ABUSE
     Dosage: UNK
     Route: 042

REACTIONS (7)
  - BODY TINEA [None]
  - CANDIDIASIS [None]
  - CENTRAL NERVOUS SYSTEM LYMPHOMA [None]
  - CEREBRAL INFARCTION [None]
  - DRUG ABUSE [None]
  - ENCEPHALOPATHY [None]
  - PITUITARY-DEPENDENT CUSHING'S SYNDROME [None]
